FAERS Safety Report 14423939 (Version 1)
Quarter: 2018Q1

REPORT INFORMATION
  Report Type: Spontaneous
  Country: GB (occurrence: GB)
  Receive Date: 20180123
  Receipt Date: 20180123
  Transmission Date: 20180509
  Serious: Yes (Other)
  Sender: FDA-Public Use
  Company Number: GB-AUROBINDO-AUR-APL-2018-002202

PATIENT
  Age: 65 Year
  Sex: Female

DRUGS (4)
  1. PARACETAMOL [Suspect]
     Active Substance: ACETAMINOPHEN
     Indication: NEURALGIA
     Dosage: ()
     Route: 065
  2. OXYCODONE HYDROCHLORIDE. [Suspect]
     Active Substance: OXYCODONE HYDROCHLORIDE
     Indication: ISCHAEMIC LIMB PAIN
     Dosage: UNK ()
     Route: 065
  3. OXYCODONE HYDROCHLORIDE. [Suspect]
     Active Substance: OXYCODONE HYDROCHLORIDE
     Indication: NEURALGIA
     Dosage: ()
  4. PARACETAMOL [Suspect]
     Active Substance: ACETAMINOPHEN
     Indication: ISCHAEMIC LIMB PAIN
     Dosage: UNK ()
     Route: 065

REACTIONS (1)
  - Drug ineffective [Unknown]
